FAERS Safety Report 25960667 (Version 1)
Quarter: 2025Q4

REPORT INFORMATION
  Report Type: Spontaneous
  Country: EU (occurrence: EU)
  Receive Date: 20251027
  Receipt Date: 20251027
  Transmission Date: 20260117
  Serious: Yes (Death, Other)
  Sender: AUROBINDO
  Company Number: EU-AFSSAPS-NT2025001012

PATIENT
  Age: 77 Year
  Sex: Male
  Weight: 82 kg

DRUGS (2)
  1. AMOXICILLIN [Suspect]
     Active Substance: AMOXICILLIN
     Indication: Epilepsy
     Dosage: 6 GRAM, ONCE A DAY (2 G 3 FOIS PAR JOUR)
     Route: 048
     Dates: start: 20250625
  2. KEPPRA [Suspect]
     Active Substance: LEVETIRACETAM
     Indication: Epilepsy
     Dosage: 1000 MILLIGRAM (1000 MG IN THE MORNING AND EVENING, THEN 500 MG IN THE MORNING AND EVENING FROM 24/0
     Route: 050
     Dates: start: 202506, end: 20250702

REACTIONS (1)
  - Toxic encephalopathy [Fatal]

NARRATIVE: CASE EVENT DATE: 20250702
